FAERS Safety Report 13252302 (Version 1)
Quarter: 2017Q1

REPORT INFORMATION
  Report Type: Report from Study
  Country: US (occurrence: US)
  Receive Date: 20170220
  Receipt Date: 20170220
  Transmission Date: 20170428
  Serious: Yes (Other)
  Sender: FDA-Public Use
  Company Number: US-AMGEN-USASL2017023596

PATIENT
  Age: 70 Year
  Sex: Female

DRUGS (2)
  1. CELEBREX [Concomitant]
     Active Substance: CELECOXIB
     Dosage: UNK
  2. ENBREL [Suspect]
     Active Substance: ETANERCEPT
     Indication: BEHCET^S SYNDROME
     Dosage: 50 MG, QWK (EVERY SUNDAY)
     Route: 065

REACTIONS (7)
  - Abasia [Recovering/Resolving]
  - Joint swelling [Recovering/Resolving]
  - Mobility decreased [Recovering/Resolving]
  - Off label use [Unknown]
  - Incorrect product storage [Unknown]
  - Wheelchair user [Recovering/Resolving]
  - Drug dose omission [Unknown]

NARRATIVE: CASE EVENT DATE: 20170210
